FAERS Safety Report 5588184-3 (Version None)
Quarter: 2008Q1

REPORT INFORMATION
  Report Type: 
  Country: None (occurrence: None)
  Receive Date: 20080109
  Receipt Date: 20080109
  Transmission Date: 20080703
  Serious: Yes (Other)
  Sender: FDA-Public Use
  Company Number: None

PATIENT
  Age: 52 Year
  Sex: Male
  Weight: 99.7913 kg

DRUGS (1)
  1. CIPRO [Suspect]
     Indication: DIARRHOEA INFECTIOUS
     Dosage: 500 MG  BID  PO
     Route: 048
     Dates: start: 20020727, end: 20020729

REACTIONS (1)
  - TENDON RUPTURE [None]
